FAERS Safety Report 8587091-1 (Version None)
Quarter: 2012Q3

REPORT INFORMATION
  Report Type: 
  Country: None (occurrence: None)
  Receive Date: 20120810
  Receipt Date: 20120803
  Transmission Date: 20120928
  Serious: Yes (Hospitalization)
  Sender: FDA-Public Use
  Company Number: US-B.I. PHARMACEUTICALS,INC./RIDGEFIELD-2012-BP-14512BP

PATIENT
  Sex: Male
  Weight: 115 kg

DRUGS (3)
  1. ASPIRIN [Concomitant]
     Indication: CARDIAC DISORDER
     Dosage: 81 MG
     Route: 048
  2. PRADAXA [Suspect]
     Indication: ATRIAL FIBRILLATION
     Dosage: 300 MG
     Route: 048
     Dates: start: 20110425, end: 20120401
  3. CARVEDILOL [Concomitant]
     Indication: BLOOD PRESSURE
     Dosage: 50 MG
     Route: 048

REACTIONS (3)
  - LIVER INJURY [None]
  - HEPATIC MASS [None]
  - GASTRIC HAEMORRHAGE [None]
